FAERS Safety Report 19652262 (Version 6)
Quarter: 2022Q2

REPORT INFORMATION
  Report Type: Report from Study
  Country: CN (occurrence: CN)
  Receive Date: 20210803
  Receipt Date: 20220622
  Transmission Date: 20220720
  Serious: Yes (Hospitalization)
  Sender: FDA-Public Use
  Company Number: CN-PFIZER INC-202100960500

PATIENT
  Age: 64 Year
  Sex: Male
  Weight: 54 kg

DRUGS (28)
  1. PACLITAXEL [Suspect]
     Active Substance: PACLITAXEL
     Indication: Squamous cell carcinoma of lung
     Dosage: 270 MG, ONCE EVERY 3 WEEKS
     Route: 041
     Dates: start: 20210625, end: 20210625
  2. CARBOPLATIN [Suspect]
     Active Substance: CARBOPLATIN
     Indication: Squamous cell carcinoma of lung
     Dosage: 550 MG, ONCE EVERY 3 WEEKS
     Route: 041
     Dates: start: 20210625, end: 20210625
  3. INVESTIGATIONAL PRODUCT [Suspect]
     Active Substance: INVESTIGATIONAL PRODUCT
     Indication: Squamous cell carcinoma of lung
     Dosage: UNK, EVERY 3 WEEKS
     Route: 041
     Dates: start: 20210624, end: 20210624
  4. IBUPROFEN [Concomitant]
     Active Substance: IBUPROFEN
     Indication: Pyrexia
     Dosage: 10 ML, 1X/DAY
     Route: 048
     Dates: start: 20210624, end: 20210624
  5. IBUPROFEN [Concomitant]
     Active Substance: IBUPROFEN
     Dosage: 10 ML, 1X/DAY
     Route: 048
     Dates: start: 20210705, end: 20210705
  6. CIMETIDINE [Concomitant]
     Active Substance: CIMETIDINE
     Indication: Prophylaxis
     Dosage: 200 MG, 1X/DAY
     Route: 048
     Dates: start: 20210624, end: 20210625
  7. ASPIRIN [Concomitant]
     Active Substance: ASPIRIN
     Indication: Prophylaxis
     Dosage: 0.1 G, 1X/DAY
     Route: 048
     Dates: start: 20210624, end: 20210625
  8. DIPHENHYDRAMINE HYDROCHLORIDE [Concomitant]
     Active Substance: DIPHENHYDRAMINE HYDROCHLORIDE
     Indication: Prophylaxis
     Dosage: 40 MG, 1X/DAY
     Route: 030
     Dates: start: 20210624, end: 20210625
  9. DEXAMETHASONE [Concomitant]
     Active Substance: DEXAMETHASONE
     Indication: Prophylaxis
     Dosage: 5 MG, 1X/DAY
     Route: 042
     Dates: start: 20210625, end: 20210625
  10. FOSAPREPITANT [Concomitant]
     Active Substance: FOSAPREPITANT
     Indication: Prophylaxis of nausea and vomiting
     Dosage: 150 MG, 1X/DAY
     Route: 041
     Dates: start: 20210625, end: 20210625
  11. MAGNESIUM ISOGLYCYRRHIZINATE [Concomitant]
     Active Substance: MAGNESIUM ISOGLYCYRRHIZINATE
     Indication: Hepatobiliary disorder prophylaxis
     Dosage: 200 MG, 1X/DAY
     Route: 041
     Dates: start: 20210625, end: 20210625
  12. MAGNESIUM ISOGLYCYRRHIZINATE [Concomitant]
     Active Substance: MAGNESIUM ISOGLYCYRRHIZINATE
     Dosage: 200 MG, 1X/DAY
     Route: 041
     Dates: start: 20210705, end: 20210708
  13. TROPISETRON [TROPISETRON HYDROCHLORIDE] [Concomitant]
     Indication: Prophylaxis of nausea and vomiting
     Dosage: 5 MG, 1X/DAY
     Route: 041
     Dates: start: 20210625, end: 20210625
  14. GLUTATHIONE [Concomitant]
     Active Substance: GLUTATHIONE
     Indication: Hepatobiliary disorder prophylaxis
     Dosage: 1.80 G, 1X/DAY
     Route: 041
     Dates: start: 20210625, end: 20210625
  15. ESOMEPRAZOLE SODIUM [Concomitant]
     Active Substance: ESOMEPRAZOLE SODIUM
     Indication: Prophylaxis against gastrointestinal ulcer
     Dosage: 40 MG, 1X/DAY
     Route: 041
     Dates: start: 20210625, end: 20210625
  16. ESOMEPRAZOLE SODIUM [Concomitant]
     Active Substance: ESOMEPRAZOLE SODIUM
     Dosage: 40 MG, 1X/DAY
     Route: 041
     Dates: start: 20210705, end: 20210708
  17. AMBROXOL HYDROCHLORIDE [Concomitant]
     Active Substance: AMBROXOL HYDROCHLORIDE
     Indication: Productive cough
     Dosage: 30 MG, 1X/DAY
     Route: 041
     Dates: start: 20210705, end: 20210715
  18. METHYLCOBALAMIN [Concomitant]
     Active Substance: METHYLCOBALAMIN
     Indication: Nutritional supplementation
     Dosage: 500 UG, 3X/DAY
     Route: 048
     Dates: start: 20210705
  19. FOLIC ACID [Concomitant]
     Active Substance: FOLIC ACID
     Indication: Anaemia
     Dosage: 5 MG, 3X/DAY
     Route: 048
     Dates: start: 20210706, end: 20210715
  20. FERRIC POLYSACCHARIDE COMPLEX [Concomitant]
     Active Substance: FERRIC POLYSACCHARIDE COMPLEX
     Indication: Anaemia
     Dosage: 150 MG, 1X/DAY
     Route: 048
     Dates: start: 20210706, end: 20210715
  21. MEROPENEM [Concomitant]
     Active Substance: MEROPENEM
     Indication: Infection
     Dosage: 1 G, EVERY 8 HOURS
     Route: 041
     Dates: start: 20210705, end: 20210708
  22. PROTEIN HYDROLYSATE [Concomitant]
     Active Substance: PROTEIN HYDROLYSATE
     Indication: Nutritional supplementation
     Dosage: 20 G, 3X/DAY
     Route: 048
     Dates: start: 20210705
  23. DYPHYLLINE [Concomitant]
     Active Substance: DYPHYLLINE
     Indication: Dyspnoea
     Dosage: 0.5 G, 1X/DAY
     Route: 041
     Dates: start: 20210705, end: 20210708
  24. VITAMIN C [Concomitant]
     Active Substance: ASCORBIC ACID
     Indication: Pyrexia
     Dosage: 1 G, 1X/DAY
     Route: 041
     Dates: start: 20210705, end: 20210705
  25. VITAMIN B6 [Concomitant]
     Active Substance: PYRIDOXINE HYDROCHLORIDE
     Indication: Pyrexia
     Dosage: 0.1 G, 1X/DAY
     Route: 041
     Dates: start: 20210705, end: 20210705
  26. POTASSIUM CHLORIDE [Concomitant]
     Active Substance: POTASSIUM CHLORIDE
     Indication: Hypokalaemia
     Dosage: 1 G, 3 H APART
     Route: 048
     Dates: start: 20210705, end: 20210705
  27. COMPOUND SODIUM LACTATE AND GLUCOSE [Concomitant]
     Indication: Pyrexia
     Dosage: 500 ML, 1X/DAY
     Route: 041
     Dates: start: 20210705, end: 20210705
  28. POTASSIUM CITRATE [Concomitant]
     Active Substance: POTASSIUM CITRATE
     Indication: Hypokalaemia
     Dosage: GRANULES, 1 POUCH, 2 H APART
     Route: 048
     Dates: start: 20210706, end: 20210707

REACTIONS (1)
  - Chronic obstructive pulmonary disease [Recovered/Resolved with Sequelae]

NARRATIVE: CASE EVENT DATE: 20210705
